FAERS Safety Report 8139451-0 (Version None)
Quarter: 2012Q1

REPORT INFORMATION
  Report Type: 
  Country: None (occurrence: None)
  Receive Date: 20120215
  Receipt Date: 20120104
  Transmission Date: 20120608
  Serious: Yes (Death)
  Sender: FDA-Public Use
  Company Number: US-COVIDIEN/TYCO HEALTHCARE/MALLINCKRODT-T201200332

PATIENT
  Age: 44 Year
  Sex: Female

DRUGS (5)
  1. HYDROCODONE BITARTRATE AND ACETAMINOPHEN [Suspect]
  2. OXYCODONE HCL EXTENDED-RELEASE [Suspect]
  3. LITHIUM CARBONATE [Suspect]
  4. CLONIDINE [Suspect]
  5. BUTALBITAL ACETAMINOPHEN AND CAFFEINE [Suspect]

REACTIONS (1)
  - COMPLETED SUICIDE [None]
